FAERS Safety Report 9632326 (Version 3)
Quarter: 2013Q4

REPORT INFORMATION
  Report Type: Report from Study
  Country: US (occurrence: US)
  Receive Date: 20131018
  Receipt Date: 20131022
  Transmission Date: 20140711
  Serious: Yes (Death, Hospitalization)
  Sender: FDA-Public Use
  Company Number: US-ACTELION-A-US2013-88970

PATIENT
  Age: 52 Year
  Sex: Male

DRUGS (2)
  1. VENTAVIS [Suspect]
     Indication: PULMONARY ARTERIAL HYPERTENSION
     Dosage: 5 UNK, 6 X/DAY
     Route: 055
     Dates: start: 20121022, end: 20131011
  2. VICODIN [Suspect]

REACTIONS (3)
  - Cardio-respiratory arrest [Fatal]
  - Localised infection [Fatal]
  - Gastrointestinal infection [Unknown]
